FAERS Safety Report 5796264-2 (Version None)
Quarter: 2008Q3

REPORT INFORMATION
  Report Type: 
  Country: None (occurrence: None)
  Receive Date: 20080701
  Receipt Date: 20080624
  Transmission Date: 20090109
  Serious: Yes (Other)
  Sender: FDA-Public Use
  Company Number: DK-ASTRAZENECA-2008SE03229

PATIENT
  Age: 32 Year
  Sex: Female
  Weight: 80 kg

DRUGS (6)
  1. BUPIVACAINE [Suspect]
     Indication: LOCAL ANAESTHESIA
     Route: 008
  2. BUPIVACAINE [Suspect]
     Route: 008
  3. SUFENTANIL CITRATE [Suspect]
     Indication: LOCAL ANAESTHESIA
  4. SUFENTANIL CITRATE [Suspect]
     Route: 008
  5. LIGNOCAINE [Concomitant]
     Dosage: TEST DOSE
     Route: 008
  6. EPINEPHRINE [Concomitant]
     Dosage: TEST DOSE
     Route: 008

REACTIONS (3)
  - EYELID PTOSIS [None]
  - PARAESTHESIA ORAL [None]
  - PARESIS [None]
